FAERS Safety Report 8853444 (Version 2)
Quarter: 2012Q4

REPORT INFORMATION
  Report Type: 
  Country: FR (occurrence: FR)
  Receive Date: 20121022
  Receipt Date: 20121126
  Transmission Date: 20130627
  Serious: Yes (Hospitalization, Other)
  Sender: FDA-Public Use
  Company Number: FR-GLAXOSMITHKLINE-B0838597A

PATIENT
  Age: 67 Year
  Sex: Female

DRUGS (6)
  1. ARIXTRA [Suspect]
     Indication: THROMBOSIS PROPHYLAXIS
     Dosage: 2.5MG Per day
     Route: 058
     Dates: start: 20120922, end: 20120925
  2. SOLUPRED [Concomitant]
     Indication: ASTHMA
  3. BRICANYL [Concomitant]
     Indication: ASTHMA
  4. INEXIUM [Concomitant]
     Indication: PROPHYLAXIS
  5. ATROVENT [Concomitant]
  6. ATARAX [Concomitant]

REACTIONS (2)
  - Abdominal wall haematoma [Recovered/Resolved]
  - Haematoma infection [Recovered/Resolved]
